FAERS Safety Report 11266113 (Version 1)
Quarter: 2015Q3

REPORT INFORMATION
  Report Type: Spontaneous
  Country: US (occurrence: US)
  Receive Date: 20150713
  Receipt Date: 20150713
  Transmission Date: 20151125
  Serious: Yes (Hospitalization)
  Sender: FDA-Public Use
  Company Number: US-PFIZER INC-2015227623

PATIENT
  Age: 46 Year
  Sex: Male
  Weight: 120.18 kg

DRUGS (5)
  1. GENOTROPIN [Suspect]
     Active Substance: SOMATROPIN
     Indication: GULF WAR SYNDROME
     Dosage: 0.8 MG, 1X/DAY
  2. NORCO [Concomitant]
     Active Substance: ACETAMINOPHEN\HYDROCODONE BITARTRATE
     Dosage: UNK, AS NEEDED
  3. SOMA [Concomitant]
     Active Substance: CARISOPRODOL
     Dosage: UNK, AS NEEDED
  4. AMBIEN [Concomitant]
     Active Substance: ZOLPIDEM TARTRATE
     Dosage: UNK, AS NEEDED
  5. TESTOSTERONE. [Concomitant]
     Active Substance: TESTOSTERONE
     Dosage: UNK, AS NEEDED

REACTIONS (3)
  - Rotator cuff syndrome [Unknown]
  - Arthropathy [Unknown]
  - Off label use [Unknown]
